FAERS Safety Report 10505778 (Version 1)
Quarter: 2014Q4

REPORT INFORMATION
  Report Type: Spontaneous
  Country: ES (occurrence: ES)
  Receive Date: 20141008
  Receipt Date: 20141008
  Transmission Date: 20150528
  Serious: Yes (Other)
  Sender: FDA-Public Use
  Company Number: PHHY2014ES130425

PATIENT
  Age: 56 Year
  Sex: Female

DRUGS (2)
  1. TRASTUZUMAB [Concomitant]
     Active Substance: TRASTUZUMAB
  2. PACLITAXEL. [Suspect]
     Active Substance: PACLITAXEL
     Indication: INVASIVE DUCTAL BREAST CARCINOMA

REACTIONS (6)
  - Skin hypertrophy [Recovering/Resolving]
  - Skin lesion [Recovering/Resolving]
  - Scleroderma [Recovering/Resolving]
  - Morphoea [Recovering/Resolving]
  - Skin plaque [Recovering/Resolving]
  - Skin atrophy [Recovering/Resolving]
